FAERS Safety Report 20047112 (Version 1)
Quarter: 2021Q4

REPORT INFORMATION
  Report Type: Spontaneous
  Country: US (occurrence: None)
  Receive Date: 20211109
  Receipt Date: 20211109
  Transmission Date: 20220303
  Serious: Yes (Hospitalization, Other)
  Sender: FDA-Public Use
  Company Number: US-Merck Healthcare KGaA-9277429

PATIENT
  Age: 33 Year
  Sex: Female
  Weight: 113 kg

DRUGS (9)
  1. METFORMIN [Suspect]
     Active Substance: METFORMIN HYDROCHLORIDE
     Indication: Type 2 diabetes mellitus
     Route: 048
     Dates: start: 2001
  2. TOZINAMERAN [Suspect]
     Active Substance: TOZINAMERAN
     Indication: COVID-19 immunisation
     Dosage: DOSE 1, SINGLE AT 16:30, IM ON RIGHT DELTOID [BNT162;PLACEBO (PLACEBO)]
     Route: 030
     Dates: start: 20200903, end: 20200903
  3. TOZINAMERAN [Suspect]
     Active Substance: TOZINAMERAN
     Dosage: DOSE 2, SINGLE, AT 16:25, IM ON RIGHT DELTOID [BNT162;PLACEBO (PLACEBO)]
     Route: 030
     Dates: start: 20200922, end: 20200922
  4. TOZINAMERAN [Suspect]
     Active Substance: TOZINAMERAN
     Dosage: DOSE 3, SINGLE, AT 16:05, IM ON RIGHT DELTOID [BNT162B2 (BNT162B2)]
     Route: 030
     Dates: start: 20210130, end: 20210130
  5. TOZINAMERAN [Suspect]
     Active Substance: TOZINAMERAN
     Dosage: DOSE 4, SINGLE
     Route: 030
     Dates: start: 20210220, end: 20210220
  6. GLIPIZIDE [Suspect]
     Active Substance: GLIPIZIDE
     Indication: Type 2 diabetes mellitus
     Route: 048
     Dates: start: 202002
  7. FLUOXETINE [Suspect]
     Active Substance: FLUOXETINE HYDROCHLORIDE
     Indication: Anxiety
     Route: 048
     Dates: start: 2017
  8. LOSARTAN [Suspect]
     Active Substance: LOSARTAN
     Indication: Hypertension
     Route: 048
     Dates: start: 202002
  9. TRULICITY [Suspect]
     Active Substance: DULAGLUTIDE
     Indication: Type 2 diabetes mellitus
     Route: 058
     Dates: start: 202002

REACTIONS (1)
  - Myocardial infarction [Recovered/Resolved]

NARRATIVE: CASE EVENT DATE: 20210729
